FAERS Safety Report 12766784 (Version 3)
Quarter: 2016Q4

REPORT INFORMATION
  Report Type: Report from Study
  Country: US (occurrence: US)
  Receive Date: 20160921
  Receipt Date: 20161212
  Transmission Date: 20170207
  Serious: Yes (Hospitalization)
  Sender: FDA-Public Use
  Company Number: US-TAIHO ONCOLOGY INC-EU-2016-02395

PATIENT
  Sex: Male
  Weight: 103.6 kg

DRUGS (1)
  1. LONSURF [Suspect]
     Active Substance: TIPIRACIL HYDROCHLORIDE\TRIFLURIDINE
     Indication: COLORECTAL CANCER
     Route: 048
     Dates: start: 201605, end: 2016

REACTIONS (6)
  - Blood test abnormal [Unknown]
  - Complication associated with device [Unknown]
  - Renal failure [Unknown]
  - Malaise [Unknown]
  - Disease progression [Unknown]
  - Fall [Unknown]

NARRATIVE: CASE EVENT DATE: 2016
